FAERS Safety Report 21753096 (Version 3)
Quarter: 2024Q3

REPORT INFORMATION
  Report Type: Report from Study
  Country: US (occurrence: US)
  Receive Date: 20221220
  Receipt Date: 20240813
  Transmission Date: 20241017
  Serious: Yes (Other)
  Sender: ABBVIE
  Company Number: US-ABBVIE-4242496

PATIENT
  Sex: Female

DRUGS (1)
  1. HUMIRA [Suspect]
     Active Substance: ADALIMUMAB
     Indication: Hidradenitis
     Dosage: CITRATE FREE?FORM STRENGTH WAS 40 MILLIGRAMS
     Route: 058
     Dates: start: 20230103

REACTIONS (14)
  - Shoulder operation [Unknown]
  - Cardiac failure [Unknown]
  - Knee arthroplasty [Unknown]
  - Systemic lupus erythematosus [Unknown]
  - Arthropathy [Unknown]
  - Central nervous system lesion [Unknown]
  - Hidradenitis [Unknown]
  - Escherichia infection [Unknown]
  - Arthralgia [Unknown]
  - Oedema peripheral [Unknown]
  - Abdominal pain upper [Unknown]
  - Arthralgia [Unknown]
  - Clostridium difficile infection [Unknown]
  - Pain in extremity [Unknown]

NARRATIVE: CASE EVENT DATE: 20240101
